FAERS Safety Report 6702750-0 (Version None)
Quarter: 2010Q2

REPORT INFORMATION
  Report Type: 
  Country: None (occurrence: None)
  Receive Date: 20100429
  Receipt Date: 20100427
  Transmission Date: 20101027
  Serious: Yes (Death, Hospitalization)
  Sender: FDA-Public Use
  Company Number: BE-ABBOTT-10P-013-0639951-00

PATIENT
  Weight: 61.3 kg

DRUGS (1)
  1. HUMIRA [Suspect]
     Indication: RHEUMATOID ARTHRITIS
     Dates: start: 20061122, end: 20100309

REACTIONS (12)
  - ATRIAL FIBRILLATION [None]
  - COLORECTAL CANCER METASTATIC [None]
  - CONFUSION POSTOPERATIVE [None]
  - DRUG TOXICITY [None]
  - DYSPNOEA [None]
  - ESCHERICHIA SEPSIS [None]
  - GASTRIC CANCER [None]
  - GASTROINTESTINAL HAEMORRHAGE [None]
  - OBSTRUCTIVE AIRWAYS DISORDER [None]
  - PNEUMONIA [None]
  - SEPTIC SHOCK [None]
  - VITAMIN D DECREASED [None]
